FAERS Safety Report 5850325-8 (Version None)
Quarter: 2008Q3

REPORT INFORMATION
  Report Type: 
  Country: None (occurrence: None)
  Receive Date: 20080819
  Receipt Date: 20080814
  Transmission Date: 20090109
  Serious: Yes (Congenital Anomaly, Other)
  Sender: FDA-Public Use
  Company Number: GB-ABBOTT-07P-167-0370896-00

PATIENT
  Sex: Male

DRUGS (2)
  1. VALPROATE SODIUM [Suspect]
     Indication: DRUG EXPOSURE DURING PREGNANCY
     Route: 064
  2. LAMOTRIGINE [Suspect]
     Indication: DRUG EXPOSURE DURING PREGNANCY
     Route: 064

REACTIONS (27)
  - COGNITIVE DISORDER [None]
  - CONGENITAL ANOMALY [None]
  - CONGENITAL EYE DISORDER [None]
  - CONGENITAL MUSCULOSKELETAL ANOMALY [None]
  - CONGENITAL NOSE MALFORMATION [None]
  - COORDINATION ABNORMAL [None]
  - DEVELOPMENTAL DELAY [None]
  - DYSMORPHISM [None]
  - ENCOPRESIS [None]
  - ENURESIS [None]
  - FEEDING DISORDER [None]
  - FOETAL ANTICONVULSANT SYNDROME [None]
  - GASTROOESOPHAGEAL REFLUX DISEASE [None]
  - HYDROCELE [None]
  - HYPERMETROPIA [None]
  - HYPOSPADIAS [None]
  - MATERNAL DRUGS AFFECTING FOETUS [None]
  - MIDDLE EAR EFFUSION [None]
  - NAIL DISORDER [None]
  - OTITIS MEDIA [None]
  - POSTMATURE BABY [None]
  - REGURGITATION [None]
  - RENAL FUSION ANOMALY [None]
  - RESPIRATION ABNORMAL [None]
  - SPEECH DISORDER [None]
  - STRABISMUS [None]
  - UVULA APLASIA [None]
